FAERS Safety Report 12122365 (Version 1)
Quarter: 2016Q1

REPORT INFORMATION
  Report Type: Spontaneous
  Country: US (occurrence: US)
  Receive Date: 20160226
  Receipt Date: 20160226
  Transmission Date: 20160526
  Serious: No
  Sender: FDA-Public Use
  Company Number: US-ASTRAZENECA-2016SE17569

PATIENT
  Age: 17776 Day
  Sex: Female
  Weight: 68 kg

DRUGS (3)
  1. CELEXA [Concomitant]
     Active Substance: CITALOPRAM HYDROBROMIDE
     Indication: ANXIETY
     Route: 048
     Dates: start: 2006
  2. MOTRIN [Concomitant]
     Active Substance: IBUPROFEN
     Indication: DYSMENORRHOEA
     Route: 048
  3. CRESTOR [Suspect]
     Active Substance: ROSUVASTATIN CALCIUM
     Indication: BLOOD CHOLESTEROL ABNORMAL
     Route: 048
     Dates: start: 20160203, end: 20160205

REACTIONS (4)
  - Procedural pain [Recovered/Resolved]
  - Therapy cessation [Unknown]
  - Fatigue [Not Recovered/Not Resolved]
  - Pain [Not Recovered/Not Resolved]

NARRATIVE: CASE EVENT DATE: 201602
